FAERS Safety Report 14244437 (Version 1)
Quarter: 2017Q4

REPORT INFORMATION
  Report Type: Report from Study
  Country: CO (occurrence: CO)
  Receive Date: 20171201
  Receipt Date: 20171201
  Transmission Date: 20180321
  Serious: Yes (Hospitalization, Other)
  Sender: FDA-Public Use
  Company Number: CO-ALEXION PHARMACEUTICALS INC.-A201713380

PATIENT
  Age: 3 Year
  Sex: Female

DRUGS (2)
  1. SOLIRIS [Suspect]
     Active Substance: ECULIZUMAB
     Indication: ATYPICAL HAEMOLYTIC URAEMIC SYNDROME
     Dosage: 300 MG, QW
     Route: 042
     Dates: start: 20160213, end: 20160402
  2. SOLIRIS [Suspect]
     Active Substance: ECULIZUMAB
     Dosage: 300 MG, EVERY 15 DAYS
     Route: 042
     Dates: start: 20160513

REACTIONS (1)
  - Peritonitis [Recovering/Resolving]

NARRATIVE: CASE EVENT DATE: 20171114
